FAERS Safety Report 22250657 (Version 1)
Quarter: 2023Q2

REPORT INFORMATION
  Report Type: Spontaneous
  Country: NL (occurrence: NL)
  Receive Date: 20230425
  Receipt Date: 20230425
  Transmission Date: 20230722
  Serious: Yes (Other)
  Sender: FDA-Public Use
  Company Number: None

PATIENT
  Sex: Female
  Weight: 66.5 kg

DRUGS (9)
  1. APIXABAN [Interacting]
     Active Substance: APIXABAN
     Indication: Arrhythmia
     Dosage: 5 MILLIGRAM, 12 HOURS, 2X APIXABAN PER DAY
     Route: 065
  2. DILTIAZEM [Interacting]
     Active Substance: DILTIAZEM
     Indication: Vasospasm
     Dosage: 60 MILLIGRAM, Q8H
     Route: 065
     Dates: start: 20230329, end: 20230401
  3. DILTIAZEM [Interacting]
     Active Substance: DILTIAZEM
     Dosage: 1 DOSAGE FORM, Q8H
     Route: 065
     Dates: start: 20230329, end: 20230401
  4. ASCORBINEZUUR [Concomitant]
     Dosage: UNK
     Route: 065
  5. VALSARTAN [Concomitant]
     Active Substance: VALSARTAN
     Dosage: 80 MILLIGRAM, QD, 1X PER DAY VALSARTAN
     Route: 065
  6. CHOLECALCIFEROL [Concomitant]
     Active Substance: CHOLECALCIFEROL
     Dosage: UNK
     Route: 065
  7. MAGNESIUM [Concomitant]
     Active Substance: MAGNESIUM
     Dosage: UNK
     Route: 065
  8. Orthiflor original [Concomitant]
     Dosage: UNK
     Route: 065
  9. BIOACTIVE UNIQINO [Concomitant]
     Dosage: UNK
     Route: 065

REACTIONS (2)
  - Haemarthrosis [Not Recovered/Not Resolved]
  - Drug interaction [Unknown]
